FAERS Safety Report 9803362 (Version 1)
Quarter: 2014Q1

REPORT INFORMATION
  Report Type: Spontaneous
  Country: US (occurrence: None)
  Receive Date: 20140107
  Receipt Date: 20140107
  Transmission Date: 20141002
  Serious: No
  Sender: FDA-Public Use
  Company Number: None

PATIENT
  Age: 36 Year
  Sex: Female

DRUGS (7)
  1. TECFIDERA 240MG BIOGEN [Suspect]
     Indication: MULTIPLE SCLEROSIS
     Dosage: JULY TO PRESENT , 1 CAPSULE, BID, ORAL
     Route: 048
  2. IMITREX [Concomitant]
  3. VERAPAMIL [Concomitant]
  4. MINIVELLE [Concomitant]
  5. ESTRADIOL [Concomitant]
  6. ZYRTEC [Concomitant]
  7. PRILOSEC [Concomitant]

REACTIONS (1)
  - Abdominal pain upper [None]
